FAERS Safety Report 7866397-5 (Version None)
Quarter: 2011Q4

REPORT INFORMATION
  Report Type: 
  Country: None (occurrence: None)
  Receive Date: 20111028
  Receipt Date: 20110610
  Transmission Date: 20120403
  Serious: No
  Sender: FDA-Public Use
  Company Number: US-GLAXOSMITHKLINE-A0931163A

PATIENT
  Age: 61 Year
  Sex: Male

DRUGS (3)
  1. ADVAIR DISKUS 100/50 [Suspect]
     Indication: CHRONIC OBSTRUCTIVE PULMONARY DISEASE
     Dosage: 1PUFF TWICE PER DAY
     Route: 055
     Dates: start: 20040101
  2. COMBIVENT [Concomitant]
  3. LISINOPRIL [Concomitant]

REACTIONS (6)
  - COUGH [None]
  - DIZZINESS [None]
  - PRODUCT QUALITY ISSUE [None]
  - INCREASED VISCOSITY OF BRONCHIAL SECRETION [None]
  - SPUTUM DISCOLOURED [None]
  - DRUG INEFFECTIVE [None]
